FAERS Safety Report 21079159 (Version 1)
Quarter: 2022Q3

REPORT INFORMATION
  Report Type: Spontaneous
  Country: US (occurrence: US)
  Receive Date: 20220714
  Receipt Date: 20220714
  Transmission Date: 20221027
  Serious: No
  Sender: FDA-Public Use
  Company Number: US-ELI_LILLY_AND_COMPANY-US202207004244

PATIENT

DRUGS (3)
  1. VERZENIO [Suspect]
     Active Substance: ABEMACICLIB
     Indication: Product used for unknown indication
     Dosage: UNK UNK, UNKNOWN
     Route: 065
  2. ABRAXANE [Concomitant]
     Active Substance: PACLITAXEL
     Indication: Product used for unknown indication
  3. HALAVEN [Concomitant]
     Active Substance: ERIBULIN MESYLATE
     Indication: Product used for unknown indication

REACTIONS (3)
  - Eating disorder [Unknown]
  - Skin lesion [Recovered/Resolved]
  - Drug ineffective [Unknown]
